FAERS Safety Report 10172896 (Version 1)
Quarter: 2014Q2

REPORT INFORMATION
  Report Type: Spontaneous
  Country: US (occurrence: US)
  Receive Date: 20140515
  Receipt Date: 20140515
  Transmission Date: 20141212
  Serious: No
  Sender: FDA-Public Use
  Company Number: US-B.I. PHARMACEUTICALS,INC./RIDGEFIELD-2014-BI-20204BP

PATIENT
  Sex: Female

DRUGS (9)
  1. SPIRIVA [Suspect]
     Indication: PRODUCT USED FOR UNKNOWN INDICATION
     Dosage: 18 MCG
     Route: 055
     Dates: start: 2011
  2. SPIRIVA [Suspect]
     Dosage: 18 MCG
     Route: 048
     Dates: start: 20140506, end: 20140506
  3. LISINOPRIL [Concomitant]
     Dosage: STRENGTH: 20/12.5;
     Route: 048
  4. PANTOPRAZOLE [Concomitant]
     Route: 048
  5. PRAVASTATIN [Concomitant]
     Route: 048
  6. LEVOTHYROXINE [Concomitant]
     Route: 048
  7. ESTRADIOL [Concomitant]
     Route: 048
  8. OXYBUTYNIN [Concomitant]
     Dosage: 10 MG
     Route: 048
  9. METFORMIN [Concomitant]
     Dosage: 2000 MG
     Route: 048

REACTIONS (2)
  - Pulmonary mass [Not Recovered/Not Resolved]
  - Incorrect route of drug administration [Recovered/Resolved]
